FAERS Safety Report 7197862-4 (Version None)
Quarter: 2010Q4

REPORT INFORMATION
  Report Type: 
  Country: None (occurrence: None)
  Receive Date: 20101227
  Receipt Date: 20101215
  Transmission Date: 20110411
  Serious: Yes (Hospitalization)
  Sender: FDA-Public Use
  Company Number: US-JNJFOC-20091202330

PATIENT
  Sex: Male
  Weight: 6 kg

DRUGS (4)
  1. BLINDED; INFLIXIMAB, RECOMBINANT [Suspect]
     Indication: KAWASAKI'S DISEASE
     Route: 042
  2. PLACEBO [Suspect]
     Indication: KAWASAKI'S DISEASE
     Route: 042
  3. IMMUNE GLOBULIN NOS [Concomitant]
     Indication: KAWASAKI'S DISEASE
     Route: 042
  4. IMMUNE GLOBULIN NOS [Concomitant]
     Route: 042

REACTIONS (1)
  - PYREXIA [None]
